APPROVED DRUG PRODUCT: HYZAAR
Active Ingredient: HYDROCHLOROTHIAZIDE; LOSARTAN POTASSIUM
Strength: 12.5MG;100MG
Dosage Form/Route: TABLET;ORAL
Application: N020387 | Product #003 | TE Code: AB
Applicant: ORGANON LLC A SUB OF ORGANON AND CO
Approved: Oct 20, 2005 | RLD: Yes | RS: No | Type: RX